FAERS Safety Report 15750190 (Version 1)
Quarter: 2018Q4

REPORT INFORMATION
  Report Type: Spontaneous
  Country: US (occurrence: US)
  Receive Date: 20181221
  Receipt Date: 20181221
  Transmission Date: 20190205
  Serious: Yes (Hospitalization, Other)
  Sender: FDA-Public Use
  Company Number: US-DSJP-DSU-2017-141098

PATIENT

DRUGS (2)
  1. BENICAR HCT [Suspect]
     Active Substance: HYDROCHLOROTHIAZIDE\OLMESARTAN MEDOXOMIL
     Indication: HYPERTENSION
     Dosage: 40/25 MG, QD
     Route: 048
     Dates: start: 20130131, end: 20170802
  2. BENICAR [Suspect]
     Active Substance: OLMESARTAN MEDOXOMIL
     Indication: HYPERTENSION
     Dosage: 40 MG, QD
     Route: 048
     Dates: start: 20120131, end: 20130101

REACTIONS (5)
  - Acute kidney injury [Recovering/Resolving]
  - Sprue-like enteropathy [Recovering/Resolving]
  - Diverticulum [Unknown]
  - Gastrooesophageal reflux disease [Unknown]
  - Haemorrhoids [Unknown]

NARRATIVE: CASE EVENT DATE: 201202
